FAERS Safety Report 10271836 (Version 1)
Quarter: 2014Q3

REPORT INFORMATION
  Report Type: Spontaneous
  Country: NL (occurrence: NL)
  Receive Date: 20140702
  Receipt Date: 20140702
  Transmission Date: 20150326
  Serious: Yes (Death)
  Sender: FDA-Public Use
  Company Number: NL-AMGEN-NLDSP2013093729

PATIENT
  Age: 98 Year
  Sex: Male

DRUGS (1)
  1. NPLATE [Suspect]
     Active Substance: ROMIPLOSTIM
     Indication: IMMUNE THROMBOCYTOPENIC PURPURA
     Dosage: 1.5 MUG/KG, QWK
     Route: 058
     Dates: start: 20100928, end: 20130816

REACTIONS (1)
  - Death [Fatal]

NARRATIVE: CASE EVENT DATE: 20130816
